FAERS Safety Report 5510749-5 (Version None)
Quarter: 2007Q4

REPORT INFORMATION
  Report Type: 
  Country: None (occurrence: None)
  Receive Date: 20071108
  Receipt Date: 20071023
  Transmission Date: 20080405
  Serious: Yes (Hospitalization)
  Sender: FDA-Public Use
  Company Number: B0489342B

PATIENT
  Age: 67 Year
  Sex: Female
  Weight: 63 kg

DRUGS (2)
  1. TYKERB [Suspect]
     Dosage: 1000MG PER DAY
     Route: 048
  2. XELODA [Suspect]
     Dosage: 2600MG PER DAY
     Route: 048

REACTIONS (2)
  - ASTHENIA [None]
  - CONFUSIONAL STATE [None]
